FAERS Safety Report 11891715 (Version 5)
Quarter: 2016Q2

REPORT INFORMATION
  Report Type: Spontaneous
  Country: JP (occurrence: JP)
  Receive Date: 20160106
  Receipt Date: 20160418
  Transmission Date: 20160815
  Serious: Yes (Death)
  Sender: FDA-Public Use
  Company Number: PHJP2015JP023868

PATIENT
  Age: 71 Year
  Sex: Male

DRUGS (2)
  1. PREDNISOLONE. [Suspect]
     Active Substance: PREDNISOLONE
     Indication: MYASTHENIA GRAVIS
     Dosage: 11 MG, QD
     Route: 065
  2. CICLOSPORIN [Suspect]
     Active Substance: CYCLOSPORINE
     Indication: MYASTHENIA GRAVIS
     Dosage: 15 MG, QD
     Route: 048

REACTIONS (6)
  - General physical health deterioration [Fatal]
  - Cytomegalovirus infection [Fatal]
  - Cytomegalovirus gastrointestinal infection [Fatal]
  - Abdominal pain upper [Fatal]
  - Cytomegalovirus gastrointestinal ulcer [Fatal]
  - Product use issue [Unknown]

NARRATIVE: CASE EVENT DATE: 201411
